FAERS Safety Report 10070558 (Version 1)
Quarter: 2014Q2

REPORT INFORMATION
  Report Type: Spontaneous
  Country: GB (occurrence: GB)
  Receive Date: 20140410
  Receipt Date: 20140410
  Transmission Date: 20141212
  Serious: Yes (Hospitalization)
  Sender: FDA-Public Use
  Company Number: GB-PFIZER INC-2014097924

PATIENT
  Age: 92 Year
  Sex: Male

DRUGS (7)
  1. BISOPROLOL [Concomitant]
     Dosage: 5 MG, 1X/DAY
  2. FUROSEMIDE [Concomitant]
     Dosage: 20 MG, 2X/DAY
  3. DOXYCYCLINE MONOHYDRATE [Suspect]
     Indication: LOWER RESPIRATORY TRACT INFECTION
     Dosage: 200MG STAT
     Route: 048
     Dates: start: 20140318
  4. DOXYCYCLINE MONOHYDRATE [Interacting]
     Dosage: 100 MG, DAILY
     Route: 048
     Dates: end: 20140321
  5. WARFARIN [Interacting]
     Indication: ATRIAL FIBRILLATION
     Dosage: 2 MG, DAILY (EXCEPT 1.5 MG TUES + SAT)
     Route: 048
     Dates: start: 20130408, end: 20140321
  6. ALLOPURINOL [Concomitant]
     Dosage: 100 MG, 1X/DAY
  7. AMLODIPINE [Concomitant]
     Dosage: 5 MG, 1X/DAY

REACTIONS (2)
  - Potentiating drug interaction [Recovering/Resolving]
  - Upper gastrointestinal haemorrhage [Recovering/Resolving]
